FAERS Safety Report 12175072 (Version 2)
Quarter: 2016Q1

REPORT INFORMATION
  Report Type: Report from Study
  Country: FR (occurrence: FR)
  Receive Date: 20160314
  Receipt Date: 20160317
  Transmission Date: 20160526
  Serious: Yes (Other)
  Sender: FDA-Public Use
  Company Number: FR-VIIV HEALTHCARE LIMITED-FR2016GSK032000

PATIENT
  Age: 3 Year
  Sex: Female

DRUGS (4)
  1. NEVIRAPINE. [Suspect]
     Active Substance: NEVIRAPINE
     Indication: HIV INFECTION
  2. ZIDOVUDINE. [Suspect]
     Active Substance: ZIDOVUDINE
     Dosage: UNK
  3. ZIDOVUDINE. [Suspect]
     Active Substance: ZIDOVUDINE
     Indication: HIV INFECTION
     Route: 064
  4. ABACAVIR. [Suspect]
     Active Substance: ABACAVIR
     Indication: HIV INFECTION

REACTIONS (2)
  - Foetal exposure during pregnancy [Unknown]
  - Astrocytoma malignant [Unknown]

NARRATIVE: CASE EVENT DATE: 2012
